FAERS Safety Report 10042696 (Version 1)
Quarter: 2014Q1

REPORT INFORMATION
  Report Type: Spontaneous
  Country: US (occurrence: US)
  Receive Date: 20140327
  Receipt Date: 20140327
  Transmission Date: 20141002
  Serious: Yes (Other)
  Sender: FDA-Public Use
  Company Number: US-PFIZER INC-2014085400

PATIENT
  Age: 53 Year
  Sex: Female
  Weight: 63.95 kg

DRUGS (3)
  1. LYRICA [Suspect]
     Indication: FIBROMYALGIA
     Dosage: 50 MG, DAILY
  2. LYRICA [Suspect]
     Dosage: 75 MG, DAILY
     Dates: start: 201401
  3. PAXIL [Concomitant]
     Dosage: 10 MG, UNK

REACTIONS (5)
  - Memory impairment [Unknown]
  - Amnesia [Unknown]
  - Impaired driving ability [Unknown]
  - Irritability [Unknown]
  - Drug ineffective [Unknown]
